FAERS Safety Report 6608795-3 (Version None)
Quarter: 2010Q1

REPORT INFORMATION
  Report Type: 
  Country: None (occurrence: None)
  Receive Date: 20100301
  Receipt Date: 20100217
  Transmission Date: 20100710
  Serious: Yes (Hospitalization)
  Sender: FDA-Public Use
  Company Number: ES-JNJFOC-20100206821

PATIENT
  Age: 74 Year
  Sex: Female
  Weight: 85 kg

DRUGS (13)
  1. FENTANYL-100 [Suspect]
     Indication: DRUG USE FOR UNKNOWN INDICATION
     Route: 065
  2. EPOETIN ALFA [Suspect]
     Indication: DRUG USE FOR UNKNOWN INDICATION
     Route: 065
  3. ZOLEDRONIC ACID [Concomitant]
     Route: 065
  4. PREGABALIN [Concomitant]
     Route: 065
  5. OMEPRAZOLE [Concomitant]
     Route: 048
  6. ZYLORIC [Concomitant]
     Route: 065
  7. ALPRAZOLAM [Concomitant]
     Route: 048
  8. CALCIUM [Concomitant]
     Route: 048
  9. SELECTIVE SEROTONIN REUPTAKE INHIBITOR [Concomitant]
     Route: 065
  10. AMLODIPINE [Concomitant]
     Route: 065
  11. TRAMADOL HCL [Concomitant]
     Route: 065
  12. SIMVASTATIN [Concomitant]
     Route: 048
  13. VELCADE [Concomitant]
     Indication: MULTIPLE MYELOMA
     Route: 042

REACTIONS (1)
  - TUMOUR PAIN [None]
